FAERS Safety Report 25569203 (Version 3)
Quarter: 2025Q3

REPORT INFORMATION
  Report Type: Spontaneous
  Country: GB (occurrence: GB)
  Receive Date: 20250716
  Receipt Date: 20250725
  Transmission Date: 20251020
  Serious: Yes (Other)
  Sender: MYLAN
  Company Number: None

PATIENT
  Age: 63 Year
  Sex: Male
  Weight: 106 kg

DRUGS (5)
  1. PHENYTOIN [Suspect]
     Active Substance: PHENYTOIN
     Indication: Seizure prophylaxis
     Dates: start: 20250620, end: 20250708
  2. LEVETIRACETAM [Suspect]
     Active Substance: LEVETIRACETAM
     Indication: Seizure prophylaxis
     Dates: start: 20250603, end: 20250711
  3. LACOSAMIDE [Suspect]
     Active Substance: LACOSAMIDE
     Indication: Seizure prophylaxis
     Dates: start: 20250619, end: 20250711
  4. MEROPENEM [Concomitant]
     Active Substance: MEROPENEM
     Indication: Central nervous system infection
  5. MEROPENEM [Concomitant]
     Active Substance: MEROPENEM

REACTIONS (1)
  - Neutropenia [Not Recovered/Not Resolved]

NARRATIVE: CASE EVENT DATE: 20250703
